FAERS Safety Report 5247188-0 (Version None)
Quarter: 2007Q1

REPORT INFORMATION
  Report Type: 
  Country: None (occurrence: None)
  Receive Date: 20070221
  Receipt Date: 20070214
  Transmission Date: 20070707
  Serious: Yes (Other)
  Sender: FDA-Public Use
  Company Number: 2007-00816

PATIENT
  Age: 14 Year
  Sex: Male

DRUGS (1)
  1. CLINDAMYCIN HYDROCHLORIDE [Suspect]
     Indication: ACNE
     Dosage: TOPICAL
     Route: 061

REACTIONS (2)
  - DEAFNESS UNILATERAL [None]
  - TINNITUS [None]
